FAERS Safety Report 18137245 (Version 1)
Quarter: 2020Q3

REPORT INFORMATION
  Report Type: Report from Study
  Country: None (occurrence: US)
  Receive Date: 20200812
  Receipt Date: 20200812
  Transmission Date: 20201103
  Serious: Yes (Other)
  Sender: FDA-Public Use
  Company Number: US-ABBVIE-20K-163-3516501-00

PATIENT
  Sex: Female

DRUGS (1)
  1. SKYRIZI [Suspect]
     Active Substance: RISANKIZUMAB-RZAA
     Indication: OSTEOPOROSIS
     Dosage: AT WEEK 4 THEN EVERY 12 WEEKS
     Route: 058

REACTIONS (33)
  - Serum ferritin decreased [Unknown]
  - Breast pain [Unknown]
  - Tonsillitis streptococcal [Unknown]
  - Acarodermatitis [Unknown]
  - Pharyngitis [Unknown]
  - Radius fracture [Unknown]
  - Depression [Unknown]
  - Sciatica [Unknown]
  - Bone cancer [Unknown]
  - Pain in extremity [Unknown]
  - Chronic kidney disease [Unknown]
  - Kidney infection [Unknown]
  - Muscle spasms [Unknown]
  - Vitamin D decreased [Unknown]
  - Bone contusion [Unknown]
  - Upper limb fracture [Unknown]
  - Antinuclear antibody increased [Unknown]
  - Fall [Unknown]
  - Urinary tract infection [Unknown]
  - Sinusitis [Unknown]
  - Renal failure [Unknown]
  - Musculoskeletal chest pain [Unknown]
  - Ulna fracture [Unknown]
  - Lung diffusion test decreased [Unknown]
  - Limb injury [Unknown]
  - Pulmonary mass [Unknown]
  - Rash [Unknown]
  - Restless legs syndrome [Unknown]
  - Connective tissue disorder [Unknown]
  - Liver function test increased [Unknown]
  - Hand fracture [Unknown]
  - Osteoarthritis [Unknown]
  - Psoriatic arthropathy [Unknown]
